FAERS Safety Report 8889954 (Version 2)
Quarter: 2012Q4

REPORT INFORMATION
  Report Type: 
  Country: US (occurrence: US)
  Receive Date: 20121107
  Receipt Date: 20121112
  Transmission Date: 20130627
  Serious: No
  Sender: FDA-Public Use
  Company Number: US-PFIZER INC-2012274954

PATIENT
  Age: 86 Year
  Sex: Male
  Weight: 62.59 kg

DRUGS (2)
  1. TOVIAZ [Suspect]
     Indication: OVERACTIVE BLADDER
     Dosage: 8 mg, 1x/day
     Route: 048
     Dates: start: 20121031
  2. ZOCOR [Concomitant]
     Indication: HIGH CHOLESTEROL
     Dosage: 40 mg, 1x/day

REACTIONS (5)
  - Dysphonia [Unknown]
  - Dry throat [Unknown]
  - Drug ineffective [Unknown]
  - Dry mouth [Not Recovered/Not Resolved]
  - Insomnia [Not Recovered/Not Resolved]
